FAERS Safety Report 8756823 (Version 3)
Quarter: 2014Q1

REPORT INFORMATION
  Report Type: Spontaneous
  Country: US (occurrence: US)
  Receive Date: 20120828
  Receipt Date: 20140107
  Transmission Date: 20141002
  Serious: Yes (Hospitalization)
  Sender: FDA-Public Use
  Company Number: US-BAYER-2012-087644

PATIENT
  Age: 22 Year
  Sex: Female
  Weight: 53.52 kg

DRUGS (6)
  1. YASMIN [Suspect]
     Indication: MENSTRUAL CYCLE MANAGEMENT
     Dosage: UNK
     Dates: start: 200602
  2. YASMIN [Suspect]
     Indication: CONTRACEPTION
  3. OCELLA [Suspect]
     Indication: MENSTRUAL CYCLE MANAGEMENT
     Dosage: UNK
     Dates: start: 200602
  4. OCELLA [Suspect]
     Indication: CONTRACEPTION
  5. OCELLA [Suspect]
     Indication: CONTRACEPTION
  6. IBUPROFEN [Concomitant]
     Dosage: UNK
     Dates: start: 2002, end: 2012

REACTIONS (8)
  - Cholelithiasis [None]
  - Injury [None]
  - Pain [None]
  - Emotional distress [None]
  - Psychological trauma [None]
  - Anxiety [None]
  - Abdominal discomfort [None]
  - Biliary colic [None]
